FAERS Safety Report 25114685 (Version 1)
Quarter: 2025Q1

REPORT INFORMATION
  Report Type: Spontaneous
  Country: FR (occurrence: FR)
  Receive Date: 20250324
  Receipt Date: 20250324
  Transmission Date: 20250408
  Serious: Yes (Other)
  Sender: MYLAN
  Company Number: None

PATIENT
  Age: 82 Year
  Sex: Female
  Weight: 45 kg

DRUGS (3)
  1. DILTIAZEM [Suspect]
     Active Substance: DILTIAZEM
     Indication: Hypertension
     Dosage: 120 MILLIGRAM, QD
     Dates: start: 20240923
  2. RAMIPRIL [Suspect]
     Active Substance: RAMIPRIL
     Indication: Hypertension
     Dosage: 2.5 MILLIGRAM, QD
     Dates: start: 20241011
  3. DILTIAZEM HYDROCHLORIDE [4]
     Active Substance: DILTIAZEM HYDROCHLORIDE
     Indication: Hypertension
     Dosage: 240 MILLIGRAM, QD (SUSTAINED-RELEASE COATED TABLE, 2X 120MG/ D)
     Dates: end: 20240923

REACTIONS (3)
  - Retinal vein occlusion [Unknown]
  - Blood pressure inadequately controlled [Unknown]
  - Product availability issue [Unknown]

NARRATIVE: CASE EVENT DATE: 20240923
